FAERS Safety Report 6136401-3 (Version None)
Quarter: 2009Q1

REPORT INFORMATION
  Report Type: 
  Country: None (occurrence: None)
  Receive Date: 20090330
  Receipt Date: 20090316
  Transmission Date: 20090719
  Serious: Yes (Other)
  Sender: FDA-Public Use
  Company Number: DE-CELGENEUS-062-50794-09031142

PATIENT
  Sex: Female

DRUGS (2)
  1. VIDAZA [Suspect]
     Route: 058
  2. VIDAZA [Suspect]

REACTIONS (1)
  - CARDIOMYOPATHY [None]
